FAERS Safety Report 25338045 (Version 3)
Quarter: 2025Q3

REPORT INFORMATION
  Report Type: Report from Study
  Country: US (occurrence: US)
  Receive Date: 20250520
  Receipt Date: 20250708
  Transmission Date: 20251020
  Serious: No
  Sender: SANOFI AVENTIS
  Company Number: US-SA-2025SA141835

PATIENT
  Age: 42 Year
  Sex: Male
  Weight: 82.1 kg

DRUGS (3)
  1. ALTUVIIIO [Suspect]
     Active Substance: EFANESOCTOCOG ALFA
     Indication: Factor VIII deficiency
     Dosage: 4000 IU, QW
     Route: 042
     Dates: start: 202401
  2. CELEXA [Concomitant]
     Active Substance: CITALOPRAM HYDROBROMIDE
     Indication: Bipolar I disorder
     Dates: end: 202402
  3. ZYPREXA [Concomitant]
     Active Substance: OLANZAPINE
     Indication: Bipolar I disorder
     Dates: end: 2024

REACTIONS (6)
  - Haemorrhage [Unknown]
  - Limb injury [Unknown]
  - Traumatic haemorrhage [Unknown]
  - Heart rate decreased [Unknown]
  - Dyspnoea [Unknown]
  - Cardiac murmur [Unknown]

NARRATIVE: CASE EVENT DATE: 20240101
